FAERS Safety Report 10220940 (Version 2)
Quarter: 2014Q2

REPORT INFORMATION
  Report Type: Spontaneous
  Country: GB (occurrence: GB)
  Receive Date: 20140606
  Receipt Date: 20140606
  Transmission Date: 20141212
  Serious: Yes (Other)
  Sender: FDA-Public Use
  Company Number: GB-TEVA-475780ISR

PATIENT
  Age: 58 Year
  Sex: Female
  Weight: 89 kg

DRUGS (5)
  1. BENDROFLUMETHIAZIDE [Suspect]
     Indication: HYPERTENSION
     Dosage: UNK
  2. ACETYLSALICYLIC ACID [Concomitant]
     Indication: TRANSIENT ISCHAEMIC ATTACK
     Dosage: 75 MILLIGRAM DAILY;
     Route: 048
     Dates: start: 20140407
  3. HORMONIN [Concomitant]
     Indication: HORMONE REPLACEMENT THERAPY
     Dosage: 1 MILLIGRAM DAILY;
     Dates: start: 20110502
  4. VENLAFAXINE [Suspect]
     Indication: ANXIETY
     Dosage: 150 MILLIGRAM DAILY;
     Route: 048
     Dates: start: 20130819, end: 20140414
  5. VENLAFAXINE [Suspect]
     Dosage: 300 MILLIGRAM DAILY;
     Route: 048
     Dates: start: 201305, end: 201306

REACTIONS (25)
  - Stevens-Johnson syndrome [Not Recovered/Not Resolved]
  - Local swelling [Unknown]
  - Pain [Unknown]
  - Heart rate irregular [Not Recovered/Not Resolved]
  - Dyspnoea [Recovering/Resolving]
  - Oral mucosal blistering [Recovering/Resolving]
  - Hypoaesthesia [Recovering/Resolving]
  - Blister [Not Recovered/Not Resolved]
  - Oral pain [Recovering/Resolving]
  - Gingival recession [Recovering/Resolving]
  - Pruritus [Recovering/Resolving]
  - Paraesthesia [Recovering/Resolving]
  - Contusion [Recovering/Resolving]
  - Swelling face [Recovering/Resolving]
  - Autoimmune thyroiditis [Unknown]
  - Alopecia [Not Recovered/Not Resolved]
  - Gingival swelling [Not Recovered/Not Resolved]
  - Oedema peripheral [Unknown]
  - Muscle spasms [Unknown]
  - Ear swelling [Unknown]
  - Pharyngeal oedema [Unknown]
  - Hyperhidrosis [Unknown]
  - Withdrawal syndrome [Unknown]
  - Facial pain [Unknown]
  - Malaise [Unknown]
